FAERS Safety Report 9558343 (Version 2)
Quarter: 2013Q3

REPORT INFORMATION
  Report Type: Report from Study
  Country: FR (occurrence: FR)
  Receive Date: 20130926
  Receipt Date: 20130927
  Transmission Date: 20140515
  Serious: Yes (Other)
  Sender: FDA-Public Use
  Company Number: FR-SANOFI-AVENTIS-2013SA091433

PATIENT
  Age: 44 Year
  Sex: Female

DRUGS (2)
  1. CAMPATH [Suspect]
     Indication: TRANSPLANT REJECTION
     Route: 042
     Dates: start: 20130301, end: 20130301
  2. CAMPATH [Suspect]
     Indication: TRANSPLANT REJECTION
     Route: 042
     Dates: end: 20130913

REACTIONS (1)
  - Drug ineffective for unapproved indication [Unknown]
